FAERS Safety Report 9979335 (Version 1)
Quarter: 2014Q1

REPORT INFORMATION
  Report Type: Report from Study
  Country: US (occurrence: US)
  Receive Date: 20140306
  Receipt Date: 20140306
  Transmission Date: 20141002
  Serious: No
  Sender: FDA-Public Use
  Company Number: US-ABBVIE-13P-163-1170017-00

PATIENT
  Age: 61 Year
  Sex: Female

DRUGS (8)
  1. HUMIRA [Suspect]
     Indication: COLITIS ULCERATIVE
     Route: 050
     Dates: start: 20130801
  2. HUMIRA [Suspect]
     Dosage: PHYSICIAN INCREASED DOSE
     Route: 050
     Dates: start: 20131002
  3. DELZICOL [Concomitant]
     Indication: COLITIS ULCERATIVE
     Dosage: 10 PER DAY
  4. CANDESARTAN [Concomitant]
     Indication: HYPERTENSION
     Dosage: 4 MG DAILY
  5. NORTRIPTYLINE [Concomitant]
     Indication: MIGRAINE
     Dosage: 2 DAILY
  6. PREDNISONE [Concomitant]
     Indication: PRODUCT USED FOR UNKNOWN INDICATION
     Dosage: 30 MG DAILY
  7. RESTASIS [Concomitant]
     Indication: PRODUCT USED FOR UNKNOWN INDICATION
  8. RANITIDINE [Concomitant]

REACTIONS (1)
  - Drug ineffective [Not Recovered/Not Resolved]
